FAERS Safety Report 6179919-X (Version None)
Quarter: 2009Q2

REPORT INFORMATION
  Report Type: 
  Country: None (occurrence: None)
  Receive Date: 20090505
  Receipt Date: 20090427
  Transmission Date: 20091009
  Serious: No
  Sender: FDA-Public Use
  Company Number: US-ALEXION-A200900233

PATIENT
  Sex: Male
  Weight: 147.4 kg

DRUGS (21)
  1. SOLIRIS [Suspect]
     Indication: PAROXYSMAL NOCTURNAL HAEMOGLOBINURIA
     Dosage: 600 MG, QWK
     Route: 042
     Dates: start: 20081125, end: 20081223
  2. SOLIRIS [Suspect]
     Dosage: 900 MG, Q2WK
     Route: 042
     Dates: start: 20081230
  3. COUMADIN [Concomitant]
     Dosage: 5 MG, QD
  4. ACETAMINOPHEN W/ CODEINE [Concomitant]
     Dosage: UNK
  5. KLOR-CON [Suspect]
     Dosage: 10 MG, QD
  6. PRAVACHOL [Concomitant]
     Dosage: 80 MG, QD
  7. MAVIK [Concomitant]
     Dosage: 1 MG, QD
  8. TORSEMIDE [Concomitant]
     Dosage: 20 MG, BID
  9. REQUIP [Concomitant]
     Dosage: 3 MG, QD, HS
  10. COREG [Concomitant]
     Dosage: 12.5 MG, BID
  11. COLCHICINE [Concomitant]
     Dosage: 0.6 UNK, BID
  12. ALLOPURINOL [Concomitant]
     Dosage: 300 MG, QD
  13. ASPIRIN [Concomitant]
     Dosage: 81 MG, 3/WK
  14. COMBIVENT                          /01033501/ [Concomitant]
     Dosage: 2 PUFFS, QD
  15. BROVANA INHALATION SOLUTION [Concomitant]
  16. GLIPIZIDE [Concomitant]
     Dosage: 20 MG, BID
  17. AVANDIA                            /01445801/ [Concomitant]
     Dosage: 4 MG, BID
  18. VITAMIN B12                        /00056201/ [Concomitant]
     Dosage: 1000 MEQ, QMO
  19. B COMPLEX                          /00212701/ [Concomitant]
     Dosage: 1 EVEN DAYS
  20. PREDNISONE [Concomitant]
     Dosage: 10 MG, QOD
  21. PRILOSEC [Concomitant]
     Dosage: 2, QD

REACTIONS (5)
  - ABDOMINAL PAIN UPPER [None]
  - DYSPNOEA EXERTIONAL [None]
  - EAR INFECTION [None]
  - HEADACHE [None]
  - NAUSEA [None]
